FAERS Safety Report 5149379-6 (Version None)
Quarter: 2006Q4

REPORT INFORMATION
  Report Type: 
  Country: None (occurrence: None)
  Receive Date: 20061113
  Receipt Date: 20051207
  Transmission Date: 20070319
  Serious: No
  Sender: FDA-Public Use
  Company Number: 427757

PATIENT
  Age: 32 Year
  Sex: Male

DRUGS (1)
  1. COREG [Suspect]
     Indication: HYPERTENSION
     Dosage: 12.5MG TWICE PER DAY
     Route: 048

REACTIONS (3)
  - BLOOD PRESSURE INCREASED [None]
  - DYSPNOEA [None]
  - THROAT TIGHTNESS [None]
